FAERS Safety Report 12182117 (Version 2)
Quarter: 2016Q2

REPORT INFORMATION
  Report Type: Report from Study
  Country: US (occurrence: US)
  Receive Date: 20160315
  Receipt Date: 20160516
  Transmission Date: 20160815
  Serious: No
  Sender: FDA-Public Use
  Company Number: US-AMGEN-USASL2016030320

PATIENT
  Age: 58 Year
  Sex: Female

DRUGS (1)
  1. ENBREL [Suspect]
     Active Substance: ETANERCEPT
     Indication: RHEUMATOID ARTHRITIS
     Dosage: 50 MG, QWK
     Route: 065
     Dates: start: 20151009

REACTIONS (9)
  - Injection site haemorrhage [Recovering/Resolving]
  - Fatigue [Unknown]
  - Sleep disorder [Unknown]
  - Periarthritis [Unknown]
  - Peripheral swelling [Not Recovered/Not Resolved]
  - Accident [Unknown]
  - Musculoskeletal stiffness [Unknown]
  - Ligament sprain [Unknown]
  - Injection site pain [Recovered/Resolved]

NARRATIVE: CASE EVENT DATE: 2016
